FAERS Safety Report 9174341 (Version 2)
Quarter: 2013Q2

REPORT INFORMATION
  Report Type: Spontaneous
  Country: AU (occurrence: AU)
  Receive Date: 20130320
  Receipt Date: 20130409
  Transmission Date: 20140414
  Serious: No
  Sender: FDA-Public Use
  Company Number: PHHY2013AU026528

PATIENT
  Age: 84 Year
  Sex: Male

DRUGS (10)
  1. ACLASTA [Suspect]
     Dosage: 5 MG, UNK
     Route: 042
     Dates: start: 20120319
  2. ACLASTA [Suspect]
     Dosage: 5 MG, UNK
     Route: 042
     Dates: start: 20130315
  3. DIATEX [Concomitant]
     Dosage: UNK
  4. ASTRIX [Concomitant]
     Dosage: UNK
  5. ENCLAVE [Concomitant]
     Dosage: UNK
  6. NORSPAN [Concomitant]
     Dosage: UNK
  7. EXELON [Concomitant]
     Dosage: UNK
  8. PANADOL [Concomitant]
     Dosage: UNK
  9. LIPITOR [Concomitant]
     Dosage: UNK UKN, UNK
  10. ANTICOAGULANTS [Concomitant]
     Indication: PULMONARY EMBOLISM

REACTIONS (1)
  - Depression [Recovered/Resolved]
